FAERS Safety Report 5841923-6 (Version None)
Quarter: 2008Q3

REPORT INFORMATION
  Report Type: 
  Country: None (occurrence: None)
  Receive Date: 20080812
  Receipt Date: 20080804
  Transmission Date: 20090109
  Serious: Yes (Hospitalization, Other)
  Sender: FDA-Public Use
  Company Number: JP-MERCK-0806USA01402

PATIENT
  Age: 72 Year
  Sex: Female
  Weight: 49 kg

DRUGS (9)
  1. FOSAMAX [Suspect]
     Indication: OSTEOPOROSIS
     Route: 048
     Dates: start: 20070307
  2. FOSAMAX [Suspect]
     Route: 048
     Dates: start: 20060126, end: 20060702
  3. FOSAMAX [Suspect]
     Route: 048
     Dates: start: 20050316, end: 20050626
  4. LIPITOR [Concomitant]
     Route: 048
     Dates: start: 20050316
  5. ASPIRIN [Concomitant]
     Route: 048
     Dates: start: 20050316
  6. MYSLEE [Concomitant]
     Route: 048
     Dates: start: 20050316
  7. AMOBAN [Concomitant]
     Route: 048
     Dates: start: 20050316
  8. CYANOCOBALAMIN [Concomitant]
     Route: 048
     Dates: start: 20050316
  9. JUVELA N [Concomitant]
     Route: 048
     Dates: start: 20050316

REACTIONS (3)
  - OSTEOMYELITIS [None]
  - OSTEONECROSIS [None]
  - RASH [None]
